FAERS Safety Report 10768550 (Version 4)
Quarter: 2015Q1

REPORT INFORMATION
  Report Type: Report from Study
  Country: CL (occurrence: CL)
  Receive Date: 20150206
  Receipt Date: 20150310
  Transmission Date: 20150721
  Serious: Yes (Hospitalization, Other)
  Sender: FDA-Public Use
  Company Number: CL-ROCHE-1532121

PATIENT
  Age: 68 Year
  Sex: Female
  Weight: 49 kg

DRUGS (2)
  1. XELODA [Suspect]
     Active Substance: CAPECITABINE
     Dosage: DRUG RESTARTED
     Route: 048
     Dates: start: 20150129
  2. XELODA [Suspect]
     Active Substance: CAPECITABINE
     Indication: COLORECTAL CANCER
     Dosage: 14 DAYS PER CYCLE
     Route: 048
     Dates: start: 20141204, end: 20150221

REACTIONS (17)
  - Skin discolouration [Not Recovered/Not Resolved]
  - Blood pressure decreased [Recovered/Resolved]
  - Dry skin [Not Recovered/Not Resolved]
  - Skin exfoliation [Not Recovered/Not Resolved]
  - Limb discomfort [Not Recovered/Not Resolved]
  - Blood electrolytes decreased [Recovered/Resolved]
  - Hearing impaired [Not Recovered/Not Resolved]
  - Malaise [Unknown]
  - Dysphonia [Unknown]
  - Fatigue [Not Recovered/Not Resolved]
  - Depressed mood [Not Recovered/Not Resolved]
  - Nail discolouration [Not Recovered/Not Resolved]
  - Diarrhoea [Recovered/Resolved]
  - Dehydration [Not Recovered/Not Resolved]
  - Vomiting [Unknown]
  - Weight decreased [Not Recovered/Not Resolved]
  - Weight increased [Not Recovered/Not Resolved]

NARRATIVE: CASE EVENT DATE: 20150129
